FAERS Safety Report 13675195 (Version 1)
Quarter: 2017Q2

REPORT INFORMATION
  Report Type: Report from Study
  Country: US (occurrence: US)
  Receive Date: 20170621
  Receipt Date: 20170621
  Transmission Date: 20170830
  Serious: Yes (Death)
  Sender: FDA-Public Use
  Company Number: US-ACTELION-A-US2016-136287

PATIENT
  Age: 69 Year
  Sex: Female
  Weight: 44.9 kg

DRUGS (3)
  1. TYVASO [Concomitant]
     Active Substance: TREPROSTINIL
  2. OPSUMIT [Suspect]
     Active Substance: MACITENTAN
     Indication: PULMONARY HYPERTENSION
     Dosage: 10 MG, QD
     Route: 048
  3. ADCIRCA [Concomitant]
     Active Substance: TADALAFIL

REACTIONS (9)
  - Blood count abnormal [Unknown]
  - Haemoglobin decreased [Unknown]
  - Blood potassium decreased [Unknown]
  - Oropharyngeal pain [Unknown]
  - Asthenia [Unknown]
  - Peripheral swelling [Unknown]
  - Acarodermatitis [Unknown]
  - Rash pruritic [Unknown]
  - Death [Fatal]

NARRATIVE: CASE EVENT DATE: 201604
